FAERS Safety Report 8191248-1 (Version None)
Quarter: 2012Q1

REPORT INFORMATION
  Report Type: 
  Country: None (occurrence: None)
  Receive Date: 20120221
  Receipt Date: 20111207
  Transmission Date: 20120608
  Serious: No
  Sender: FDA-Public Use
  Company Number: 047361

PATIENT
  Age: 50 Year
  Sex: Male

DRUGS (1)
  1. LACOSAMIDE [Suspect]
     Dosage: (100 MG BID, HIGHEST DOSE OF STARTER KIT X ON FOR THREE WEEKS: FORM - PILL)

REACTIONS (1)
  - ORAL HERPES [None]
